FAERS Safety Report 6889539-7 (Version None)
Quarter: 2010Q3

REPORT INFORMATION
  Report Type: 
  Country: None (occurrence: None)
  Receive Date: 20100730
  Receipt Date: 20080306
  Transmission Date: 20110219
  Serious: No
  Sender: FDA-Public Use
  Company Number: US-PFIZER INC-2008021801

PATIENT
  Sex: Male
  Weight: 70.454 kg

DRUGS (2)
  1. LIPITOR [Suspect]
     Indication: BLOOD CHOLESTEROL ABNORMAL
     Dates: start: 19980101
  2. ATENOLOL [Concomitant]
     Indication: BLOOD PRESSURE ABNORMAL

REACTIONS (1)
  - DRY SKIN [None]
